FAERS Safety Report 9320295 (Version 3)
Quarter: 2013Q3

REPORT INFORMATION
  Report Type: Spontaneous
  Country: US (occurrence: US)
  Receive Date: 20130530
  Receipt Date: 20130731
  Transmission Date: 20140515
  Serious: No
  Sender: FDA-Public Use
  Company Number: US-009507513-1305USA009530

PATIENT
  Age: 28 Year
  Sex: Male
  Weight: 99.77 kg

DRUGS (8)
  1. VICTRELIS [Suspect]
     Dosage: 800 MG, EVERY 8 HOURS FOR 4 WEEKS
     Route: 048
  2. PEGINTRON [Suspect]
     Dosage: 150 MICROGRAM, QW, REDIPEN
     Route: 058
  3. REBETOL [Suspect]
     Dosage: UNK
     Route: 048
  4. XANAX [Concomitant]
     Route: 048
  5. METHADONE HYDROCHLORIDE [Concomitant]
     Route: 048
  6. PAXIL [Concomitant]
     Route: 048
  7. LISINOPRIL [Concomitant]
     Route: 048
  8. METFORMIN [Concomitant]
     Route: 048

REACTIONS (6)
  - Injection site erythema [Unknown]
  - Injection site reaction [Unknown]
  - Abdominal pain upper [Unknown]
  - Influenza like illness [Unknown]
  - Nausea [Unknown]
  - Fatigue [Unknown]
